FAERS Safety Report 4439708-0 (Version None)
Quarter: 2004Q3

REPORT INFORMATION
  Report Type: 
  Country: None (occurrence: None)
  Receive Date: 20040831
  Receipt Date: 20040826
  Transmission Date: 20050211
  Serious: Yes (Hospitalization)
  Sender: FDA-Public Use
  Company Number: A044-002-005156

PATIENT
  Age: 81 Year
  Sex: Female
  Weight: 50 kg

DRUGS (1)
  1. ARICEPT [Suspect]
     Indication: DEMENTIA ALZHEIMER'S TYPE
     Dosage: ORAL
     Route: 048
     Dates: end: 20040806

REACTIONS (4)
  - HEADACHE [None]
  - HYPERSOMNIA [None]
  - INCREASED BRONCHIAL SECRETION [None]
  - MIOSIS [None]
